FAERS Safety Report 21367900 (Version 1)
Quarter: 2022Q3

REPORT INFORMATION
  Report Type: Report from Study
  Country: JP (occurrence: JP)
  Receive Date: 20220923
  Receipt Date: 20220923
  Transmission Date: 20221027
  Serious: Yes (Hospitalization)
  Sender: FDA-Public Use
  Company Number: JP-SUN PHARMACEUTICAL INDUSTRIES LTD-2022RR-355464

PATIENT
  Age: 85 Year
  Sex: Female

DRUGS (4)
  1. ACETAMINOPHEN [Suspect]
     Active Substance: ACETAMINOPHEN
     Indication: Product used for unknown indication
     Dosage: UNK
     Route: 065
  2. BALOXAVIR [Suspect]
     Active Substance: BALOXAVIR
     Indication: Influenza
     Dosage: UNK
     Route: 065
  3. UNSPECIFIED INGREDIENT [Suspect]
     Active Substance: UNSPECIFIED INGREDIENT
     Indication: Influenza
     Dosage: UNK
     Route: 065
  4. PERAMIVIR [Suspect]
     Active Substance: PERAMIVIR
     Indication: Influenza
     Dosage: UNK
     Route: 065

REACTIONS (1)
  - Melaena [Unknown]
